FAERS Safety Report 14379512 (Version 3)
Quarter: 2019Q2

REPORT INFORMATION
  Report Type: Report from Study
  Country: US (occurrence: US)
  Receive Date: 20180112
  Receipt Date: 20190411
  Transmission Date: 20190711
  Serious: Yes (Other)
  Sender: FDA-Public Use
  Company Number: US-AMGEN-USASL2018003287

PATIENT
  Age: 76 Year
  Sex: Male

DRUGS (1)
  1. REPATHA [Suspect]
     Active Substance: EVOLOCUMAB
     Indication: BLOOD CHOLESTEROL ABNORMAL
     Dosage: 140 MG, Q2WK
     Route: 065

REACTIONS (6)
  - Hip fracture [Recovering/Resolving]
  - Atrial fibrillation [Unknown]
  - Fall [Unknown]
  - Femur fracture [Unknown]
  - Spinal operation [Unknown]
  - Dementia [Unknown]

NARRATIVE: CASE EVENT DATE: 201712
